FAERS Safety Report 23588495 (Version 1)
Quarter: 2024Q1

REPORT INFORMATION
  Report Type: Spontaneous
  Country: US (occurrence: US)
  Receive Date: 20240302
  Receipt Date: 20240302
  Transmission Date: 20240409
  Serious: Yes (Congenital Anomaly, Other)
  Sender: FDA-Public Use
  Company Number: US-002147023-NVSC2024US039433

PATIENT
  Weight: 5.506 kg

DRUGS (1)
  1. COSENTYX [Suspect]
     Active Substance: SECUKINUMAB
     Indication: Foetal exposure during pregnancy
     Dosage: MATERNAL EXPOSURE DURING PREGNANCY:300 MG, Q4W
     Route: 064
     Dates: start: 201603, end: 20240110

REACTIONS (3)
  - Ventricular septal defect [Not Recovered/Not Resolved]
  - Postnatal growth restriction [Not Recovered/Not Resolved]
  - Foetal exposure during pregnancy [Unknown]

NARRATIVE: CASE EVENT DATE: 20240202
